FAERS Safety Report 8559646-1 (Version None)
Quarter: 2012Q3

REPORT INFORMATION
  Report Type: 
  Country: None (occurrence: None)
  Receive Date: 20120802
  Receipt Date: 20120725
  Transmission Date: 20120928
  Serious: Yes (Death, Disabling, Other)
  Sender: FDA-Public Use
  Company Number: US-BAYER-2012-055520

PATIENT
  Age: 50 Year
  Sex: Female
  Weight: 95.54 kg

DRUGS (17)
  1. MAGNEVIST [Suspect]
     Indication: NUCLEAR MAGNETIC RESONANCE IMAGING
     Dosage: UNK
     Dates: start: 20030812, end: 20030812
  2. WARFARIN [Concomitant]
     Dosage: 5 MG, UNK
     Route: 048
  3. LOPRESSOR [Concomitant]
     Dosage: 12.5 MG, BID
     Route: 048
  4. MAGNEVIST [Suspect]
     Indication: CARDIAC IMAGING PROCEDURE
     Dosage: UNK
     Dates: start: 20030807, end: 20030807
  5. SEVELAMER [Concomitant]
     Dosage: 800 MG, UNK
     Route: 048
  6. BENICAR [Concomitant]
     Dosage: 20 MG, OM
     Route: 048
  7. MAGNEVIST [Suspect]
     Indication: RENAL SCAN
     Dosage: UNK
     Dates: start: 20030807, end: 20030807
  8. MAGNEVIST [Suspect]
     Dosage: UNK
     Dates: start: 20040203, end: 20040203
  9. MAGNEVIST [Suspect]
     Indication: NUCLEAR MAGNETIC RESONANCE IMAGING ABDOMINAL
     Dosage: UNK
     Dates: start: 20040203, end: 20040203
  10. ATORVASTATIN [Concomitant]
     Dosage: 10 MG, UNK
     Route: 048
  11. RAPAMUNE [Concomitant]
     Dosage: 5 MG, QD
     Route: 048
  12. MAGNEVIST [Suspect]
     Dosage: UNK
     Dates: start: 20030812, end: 20030812
  13. DILTIAZEM [Concomitant]
     Dosage: 240 MG, UNK
     Route: 048
  14. CALCIUM CARBONATE [Concomitant]
     Dosage: 500 MG, UNK
     Route: 048
  15. CLONIDINE [Concomitant]
     Dosage: 0.3 MG, UNK
     Route: 048
  16. SODIUM BICARBONATE [Concomitant]
     Dosage: 4 DF, BID
  17. EPOGEN [Concomitant]
     Dosage: 10000 U, BIW
     Route: 058

REACTIONS (12)
  - ANXIETY [None]
  - SKIN INDURATION [None]
  - SKIN DISCOLOURATION [None]
  - NEPHROGENIC SYSTEMIC FIBROSIS [None]
  - SCLERODERMA [None]
  - RASH [None]
  - SKIN MASS [None]
  - INJURY [None]
  - SKIN HYPERPIGMENTATION [None]
  - EMOTIONAL DISTRESS [None]
  - PAIN [None]
  - SCLERAL DISORDER [None]
